FAERS Safety Report 8579256-X (Version None)
Quarter: 2012Q3

REPORT INFORMATION
  Report Type: 
  Country: None (occurrence: None)
  Receive Date: 20120808
  Receipt Date: 20120606
  Transmission Date: 20120928
  Serious: Yes (Other)
  Sender: FDA-Public Use
  Company Number: FR-ROCHE-1096271

PATIENT
  Sex: Male

DRUGS (11)
  1. LEUCOVORIN CALCIUM [Concomitant]
     Dates: start: 20080912, end: 20081204
  2. LEUCOVORIN CALCIUM [Concomitant]
     Dates: start: 20100503, end: 20100921
  3. LEUCOVORIN CALCIUM [Concomitant]
     Dates: start: 20101108, end: 20110301
  4. FLUOROURACIL [Concomitant]
     Dates: start: 20100503, end: 20100921
  5. FLUOROURACIL [Concomitant]
     Dates: start: 20080912, end: 20081204
  6. AVASTIN [Suspect]
     Indication: COLON CANCER
     Dates: start: 20080618, end: 20080912
  7. FLUOROURACIL [Concomitant]
     Dates: start: 20101108, end: 20110301
  8. OXALIPLATIN [Concomitant]
     Dates: start: 20080912, end: 20081204
  9. ERBITUX [Suspect]
     Dates: start: 20100503, end: 20100921
  10. IRINOTECAN HYDROCHLORIDE [Concomitant]
     Dates: start: 20101108, end: 20110301
  11. IRINOTECAN HYDROCHLORIDE [Concomitant]
     Dates: start: 20100503, end: 20100921

REACTIONS (5)
  - DISEASE PROGRESSION [None]
  - ASTHENIA [None]
  - PULMONARY EMBOLISM [None]
  - PHLEBITIS [None]
  - NEUROPATHY PERIPHERAL [None]
